FAERS Safety Report 13345616 (Version 2)
Quarter: 2017Q2

REPORT INFORMATION
  Report Type: Spontaneous
  Country: SE (occurrence: SE)
  Receive Date: 20170317
  Receipt Date: 20170518
  Transmission Date: 20170830
  Serious: Yes (Death, Other)
  Sender: FDA-Public Use
  Company Number: SE-BAYER-2017-051011

PATIENT
  Sex: Male

DRUGS (2)
  1. XOFIGO [Suspect]
     Active Substance: RADIUM RA-223 DICHLORIDE
     Indication: PROSTATE CANCER STAGE IV
     Dosage: HAD 3 CYCLES
     Dates: start: 20160218, end: 201605
  2. IPREN [Concomitant]
     Active Substance: IBUPROFEN
     Indication: BACK PAIN

REACTIONS (9)
  - Metastases to liver [Fatal]
  - Metastases to bone [Fatal]
  - Drug ineffective [None]
  - Anaemia [None]
  - General physical health deterioration [None]
  - Pancytopenia [None]
  - Fatigue [None]
  - Prostate cancer [Fatal]
  - Bone marrow infiltration [Fatal]

NARRATIVE: CASE EVENT DATE: 2016
